FAERS Safety Report 13804155 (Version 1)
Quarter: 2017Q3

REPORT INFORMATION
  Report Type: Report from Study
  Country: US (occurrence: US)
  Receive Date: 20170728
  Receipt Date: 20170728
  Transmission Date: 20171127
  Serious: Yes (Death, Other)
  Sender: FDA-Public Use
  Company Number: US-TORRENT-00003222

PATIENT
  Age: 5 Decade
  Sex: Male

DRUGS (4)
  1. ATORVASTATIN [Suspect]
     Active Substance: ATORVASTATIN
  2. ALPRAZOLAM. [Suspect]
     Active Substance: ALPRAZOLAM
  3. FLONASE [Concomitant]
     Active Substance: FLUTICASONE PROPIONATE
  4. ZOLPIDEM [Suspect]
     Active Substance: ZOLPIDEM\ZOLPIDEM TARTRATE

REACTIONS (9)
  - Amnesia [Unknown]
  - Completed suicide [Fatal]
  - Hypoacusis [Unknown]
  - Myalgia [Unknown]
  - Abnormal behaviour [Unknown]
  - Depression [Unknown]
  - Eczema [Unknown]
  - Paranoia [Unknown]
  - Personality change [Unknown]
